FAERS Safety Report 8966446 (Version 5)
Quarter: 2013Q3

REPORT INFORMATION
  Report Type: Spontaneous
  Country: US (occurrence: US)
  Receive Date: 20121217
  Receipt Date: 20130904
  Transmission Date: 20140515
  Serious: Yes (Death, Other)
  Sender: FDA-Public Use
  Company Number: US-ELI_LILLY_AND_COMPANY-US201212001285

PATIENT
  Sex: Male

DRUGS (1)
  1. ZYPREXA [Suspect]
     Dosage: 2.5 MG, EACH EVENING
     Dates: start: 20111223

REACTIONS (4)
  - Cerebrovascular accident [Fatal]
  - Ischaemic cardiomyopathy [Unknown]
  - Hypertension [Unknown]
  - Hyperlipidaemia [Unknown]
